FAERS Safety Report 9195885 (Version 3)
Quarter: 2013Q3

REPORT INFORMATION
  Report Type: Spontaneous
  Country: US (occurrence: US)
  Receive Date: 20130328
  Receipt Date: 20130930
  Transmission Date: 20140515
  Serious: Yes (Other)
  Sender: FDA-Public Use
  Company Number: US-BAYER-2013-036021

PATIENT
  Age: 24 Year
  Sex: Female

DRUGS (2)
  1. MIRENA [Suspect]
     Indication: CONTRACEPTION
     Dosage: 20 MCG/24HR, CONT
     Route: 015
     Dates: start: 20080828, end: 20130315
  2. ADDERALL XR [Concomitant]
     Dosage: 25 MG, QD

REACTIONS (6)
  - Pregnancy with contraceptive device [None]
  - Drug ineffective [None]
  - Amenorrhoea [None]
  - Vaginal haemorrhage [None]
  - Nausea [None]
  - Abortion missed [None]
